FAERS Safety Report 15207293 (Version 3)
Quarter: 2018Q4

REPORT INFORMATION
  Report Type: Report from Study
  Country: CH (occurrence: CH)
  Receive Date: 20180727
  Receipt Date: 20181218
  Transmission Date: 20190204
  Serious: Yes (Hospitalization)
  Sender: FDA-Public Use
  Company Number: PHHY2018CH050469

PATIENT
  Age: 53 Year
  Sex: Male

DRUGS (138)
  1. FUROSEMIDE. [Concomitant]
     Active Substance: FUROSEMIDE
     Dosage: 40 MG/H, TID
     Route: 042
     Dates: start: 20180622, end: 20180622
  2. ACETAMINOPHEN. [Concomitant]
     Active Substance: ACETAMINOPHEN
     Dosage: 1000 MG, QD
     Route: 048
     Dates: start: 20180617, end: 20180617
  3. ACETAMINOPHEN. [Concomitant]
     Active Substance: ACETAMINOPHEN
     Dosage: 500 MG, PRN
     Route: 048
     Dates: start: 20180627
  4. MORPHINE [Concomitant]
     Active Substance: MORPHINE
     Dosage: 8 MG, TID
     Route: 042
     Dates: start: 20180604, end: 20180604
  5. MORPHINE [Concomitant]
     Active Substance: MORPHINE
     Dosage: 8 MG, BID
     Route: 048
     Dates: start: 20180607, end: 20180609
  6. MORPHINE [Concomitant]
     Active Substance: MORPHINE
     Dosage: 40 MG, BID
     Route: 048
     Dates: start: 20180714, end: 20180730
  7. MACROGOL [Concomitant]
     Active Substance: POLYETHYLENE GLYCOLS
     Indication: PRODUCT USED FOR UNKNOWN INDICATION
     Dosage: 1 U, QD
     Route: 048
     Dates: start: 20180701, end: 20180701
  8. GLYCEROL [Concomitant]
     Active Substance: GLYCERIN
     Indication: PRODUCT USED FOR UNKNOWN INDICATION
     Dosage: 1 U, QD
     Route: 054
     Dates: start: 20180708, end: 20180708
  9. FUROSEMIDE. [Concomitant]
     Active Substance: FUROSEMIDE
     Dosage: 40 MG/H, TID
     Route: 042
     Dates: start: 20180621, end: 20180621
  10. CALCIUM GLUCONATE. [Concomitant]
     Active Substance: CALCIUM GLUCONATE
     Dosage: 2.25 MMOL, TID
     Route: 042
     Dates: start: 20080611, end: 20180618
  11. MORPHINE [Concomitant]
     Active Substance: MORPHINE
     Dosage: 8 MG/H, BID
     Route: 042
     Dates: start: 20180606, end: 20180606
  12. MORPHINE [Concomitant]
     Active Substance: MORPHINE
     Dosage: 8 MG, QD
     Route: 048
     Dates: start: 20180613, end: 20180614
  13. MORPHINE [Concomitant]
     Active Substance: MORPHINE
     Dosage: 9 MG, 5QD
     Route: 058
     Dates: start: 20180701, end: 20180701
  14. MORPHINE [Concomitant]
     Active Substance: MORPHINE
     Dosage: 9 MG, 8QD
     Route: 058
     Dates: start: 20180702, end: 20180702
  15. POTASSIUM [Concomitant]
     Active Substance: POTASSIUM
     Dosage: 1 DF, TID
     Route: 048
     Dates: start: 20180617, end: 20180618
  16. CEFEPIME [Concomitant]
     Active Substance: CEFEPIME HYDROCHLORIDE
     Dosage: 2 G, TID
     Route: 042
     Dates: start: 20180618, end: 20180623
  17. TORASEMIDE [Concomitant]
     Active Substance: TORSEMIDE
     Dosage: 20 MG, QD
     Route: 048
     Dates: start: 20180624, end: 20180626
  18. VALACICLOVIR [Concomitant]
     Active Substance: VALACYCLOVIR HYDROCHLORIDE
     Dosage: 500 MG, QD
     Route: 048
     Dates: start: 20180705, end: 20180705
  19. SODIUM PICOSULFATE [Concomitant]
     Active Substance: SODIUM PICOSULFATE
     Indication: PRODUCT USED FOR UNKNOWN INDICATION
     Dosage: 10 GTT, QD
     Route: 048
     Dates: start: 20180701, end: 20180704
  20. SODIUM PICOSULFATE [Concomitant]
     Active Substance: SODIUM PICOSULFATE
     Dosage: 10 GTT, QD
     Route: 048
     Dates: start: 20180706, end: 20180708
  21. ROSUVASTATIN. [Concomitant]
     Active Substance: ROSUVASTATIN
     Indication: PRODUCT USED FOR UNKNOWN INDICATION
     Dosage: 10 MG, QD
     Route: 048
     Dates: start: 20000101, end: 20180604
  22. ESOMEPRAZOLE. [Concomitant]
     Active Substance: ESOMEPRAZOLE MAGNESIUM
     Dosage: 40 MG, BID
     Route: 042
     Dates: start: 20180605, end: 20180605
  23. CLARITHROMYCIN. [Concomitant]
     Active Substance: CLARITHROMYCIN
     Indication: PRODUCT USED FOR UNKNOWN INDICATION
     Dosage: 500 MG, QD
     Route: 048
     Dates: start: 20180612, end: 20180612
  24. DOSPIR [Concomitant]
     Active Substance: ALBUTEROL SULFATE\IPRATROPIUM BROMIDE
     Dosage: 2 OT, QD (PUFF)
     Route: 055
     Dates: start: 20180613, end: 20180613
  25. FLUDARABINE [Suspect]
     Active Substance: FLUDARABINE PHOSPHATE
     Indication: METASTATIC MALIGNANT MELANOMA
     Dosage: 59.5 MG, UNK
     Route: 042
     Dates: start: 20180605, end: 20180605
  26. FUROSEMIDE. [Concomitant]
     Active Substance: FUROSEMIDE
     Dosage: 40 MG, QD
     Route: 042
     Dates: start: 20180607, end: 20180607
  27. FUROSEMIDE. [Concomitant]
     Active Substance: FUROSEMIDE
     Dosage: 20 MG, QD
     Route: 042
     Dates: start: 20180616, end: 20180616
  28. CALCIUM GLUCONATE. [Concomitant]
     Active Substance: CALCIUM GLUCONATE
     Indication: PRODUCT USED FOR UNKNOWN INDICATION
     Dosage: 2.25 MMOL, BID
     Route: 042
     Dates: start: 20180605, end: 20180605
  29. ACETAMINOPHEN. [Concomitant]
     Active Substance: ACETAMINOPHEN
     Indication: PRODUCT USED FOR UNKNOWN INDICATION
     Dosage: 1 G, PRN
     Route: 048
     Dates: start: 20150101, end: 20180604
  30. ACETAMINOPHEN. [Concomitant]
     Active Substance: ACETAMINOPHEN
     Dosage: 1000 MG, QD
     Route: 048
     Dates: start: 20180618, end: 20180619
  31. MORPHINE [Concomitant]
     Active Substance: MORPHINE
     Indication: PRODUCT USED FOR UNKNOWN INDICATION
     Dosage: 4 MG, QD
     Route: 048
     Dates: start: 20180604, end: 20180604
  32. MORPHINE [Concomitant]
     Active Substance: MORPHINE
     Dosage: 8 MG, TID
     Route: 048
     Dates: start: 20180618, end: 20180618
  33. MORPHINE [Concomitant]
     Active Substance: MORPHINE
     Dosage: 8 MG, BID
     Route: 048
     Dates: start: 20180618, end: 20180618
  34. MORPHINE [Concomitant]
     Active Substance: MORPHINE
     Dosage: 9 MG, 5 TIMES A DAY
     Route: 058
     Dates: start: 20180712, end: 20180712
  35. LORAZEPAM. [Concomitant]
     Active Substance: LORAZEPAM
     Dosage: 1 MG, QD
     Route: 048
     Dates: start: 20180617, end: 20180617
  36. METOCLOPRAMIDE. [Concomitant]
     Active Substance: METOCLOPRAMIDE
     Indication: PRODUCT USED FOR UNKNOWN INDICATION
     Dosage: 10 MG, QD
     Route: 042
     Dates: start: 20180625, end: 20180626
  37. PREGABALIN. [Concomitant]
     Active Substance: PREGABALIN
     Indication: PRODUCT USED FOR UNKNOWN INDICATION
     Dosage: 50 MG, PRN
     Route: 048
     Dates: start: 20150330
  38. VALACICLOVIR [Concomitant]
     Active Substance: VALACYCLOVIR HYDROCHLORIDE
     Dosage: 500 MG, BID
     Route: 048
     Dates: start: 20180702, end: 20180704
  39. MACROGOL [Concomitant]
     Active Substance: POLYETHYLENE GLYCOLS
     Dosage: 1 U, QD
     Route: 048
     Dates: start: 20180705, end: 20180705
  40. DOSPIR [Concomitant]
     Active Substance: ALBUTEROL SULFATE\IPRATROPIUM BROMIDE
     Indication: PRODUCT USED FOR UNKNOWN INDICATION
     Dosage: 2 OT, QD (PUFF)
     Route: 055
     Dates: start: 20180612, end: 20180612
  41. PEMBROLIZUMAB. [Suspect]
     Active Substance: PEMBROLIZUMAB
     Indication: METASTATIC MALIGNANT MELANOMA
     Dosage: UNK
     Route: 065
     Dates: start: 201701, end: 201705
  42. IPILIMUMAB [Suspect]
     Active Substance: IPILIMUMAB
     Indication: METASTATIC MALIGNANT MELANOMA
     Dosage: UNK
     Route: 065
     Dates: start: 20170731, end: 20171002
  43. CALCIUM [Concomitant]
     Active Substance: CALCIUM
     Dosage: 500 MG, TID
     Route: 048
     Dates: start: 20180610, end: 20180610
  44. CALCIUM [Concomitant]
     Active Substance: CALCIUM
     Dosage: 1000 MG, QD
     Route: 048
     Dates: start: 20180619, end: 20180625
  45. ACETAMINOPHEN. [Concomitant]
     Active Substance: ACETAMINOPHEN
     Dosage: 1000 MG, TID
     Route: 048
     Dates: start: 20180615, end: 20180616
  46. MORPHINE [Concomitant]
     Active Substance: MORPHINE
     Dosage: 8 MG/H, UNK (EVERY 4 HOURS)
     Route: 042
     Dates: start: 20180605, end: 20180605
  47. MORPHINE [Concomitant]
     Active Substance: MORPHINE
     Dosage: 20 MG, QD
     Route: 048
     Dates: start: 20180712, end: 20180712
  48. METOCLOPRAMIDE. [Concomitant]
     Active Substance: METOCLOPRAMIDE
     Dosage: 10 MG, PRN
     Route: 048
     Dates: start: 20180627, end: 20180730
  49. OXYCODONE [Concomitant]
     Active Substance: OXYCODONE
     Indication: PRODUCT USED FOR UNKNOWN INDICATION
     Dosage: 5 MG, PRN
     Route: 048
     Dates: start: 20180628, end: 20180629
  50. PREGABALIN. [Concomitant]
     Active Substance: PREGABALIN
     Dosage: 100 MG, BID
     Route: 048
     Dates: start: 20180714
  51. MACROGOL [Concomitant]
     Active Substance: POLYETHYLENE GLYCOLS
     Dosage: 1 U, BID
     Route: 048
     Dates: start: 20180706, end: 20180710
  52. MACROGOL [Concomitant]
     Active Substance: POLYETHYLENE GLYCOLS
     Dosage: 1 U, QD
     Route: 048
     Dates: start: 20180711, end: 20180711
  53. MACROGOL [Concomitant]
     Active Substance: POLYETHYLENE GLYCOLS
     Dosage: 1 U, BID
     Route: 048
     Dates: start: 20180712, end: 20180714
  54. MACROGOL [Concomitant]
     Active Substance: POLYETHYLENE GLYCOLS
     Dosage: 1 U, BID
     Route: 048
     Dates: start: 20180716
  55. SODIUM PICOSULFATE [Concomitant]
     Active Substance: SODIUM PICOSULFATE
     Dosage: 15 DRP, QD
     Route: 048
     Dates: start: 20180709
  56. CLEMASTINE [Concomitant]
     Active Substance: CLEMASTINE
     Indication: PRODUCT USED FOR UNKNOWN INDICATION
     Dosage: 2 MG, QD
     Route: 042
     Dates: start: 20180704, end: 20180707
  57. MESNA. [Concomitant]
     Active Substance: MESNA
     Indication: PRODUCT USED FOR UNKNOWN INDICATION
     Dosage: 2760 MG, TID
     Route: 042
     Dates: start: 20180605, end: 20180606
  58. FLUCONAZOLE. [Concomitant]
     Active Substance: FLUCONAZOLE
     Indication: PRODUCT USED FOR UNKNOWN INDICATION
     Dosage: 400 MG, QD
     Route: 048
     Dates: start: 20180610, end: 20180623
  59. TELMISARTAN. [Concomitant]
     Active Substance: TELMISARTAN
     Indication: PRODUCT USED FOR UNKNOWN INDICATION
     Dosage: 80 MG, QD
     Route: 048
     Dates: start: 20000101, end: 20180605
  60. TRAMETINIB [Suspect]
     Active Substance: TRAMETINIB
     Indication: METASTATIC MALIGNANT MELANOMA
     Dosage: 02 MG, QD
     Route: 048
     Dates: start: 20171012, end: 20180520
  61. FUROSEMIDE. [Concomitant]
     Active Substance: FUROSEMIDE
     Indication: PRODUCT USED FOR UNKNOWN INDICATION
     Dosage: 40 MG, BID
     Route: 042
     Dates: start: 20180606, end: 20180606
  62. CALCIUM GLUCONATE. [Concomitant]
     Active Substance: CALCIUM GLUCONATE
     Dosage: 2.25 MMOL, QD
     Route: 042
     Dates: start: 20180619, end: 20180619
  63. CALCIUM [Concomitant]
     Active Substance: CALCIUM
     Indication: PRODUCT USED FOR UNKNOWN INDICATION
     Dosage: 500 MG, QD
     Route: 048
     Dates: start: 20180609, end: 20180609
  64. MORPHINE [Concomitant]
     Active Substance: MORPHINE
     Dosage: 9 MG, 5QD
     Route: 058
     Dates: start: 20180707, end: 20180708
  65. POTASSIUM [Concomitant]
     Active Substance: POTASSIUM
     Indication: PRODUCT USED FOR UNKNOWN INDICATION
     Dosage: 1 DF, TID
     Route: 048
     Dates: start: 20180611, end: 20180611
  66. CEFEPIME [Concomitant]
     Active Substance: CEFEPIME HYDROCHLORIDE
     Dosage: 2 G, QD
     Route: 042
     Dates: start: 20180624, end: 20180624
  67. MACROGOL [Concomitant]
     Active Substance: POLYETHYLENE GLYCOLS
     Dosage: 1 U, QD
     Route: 048
     Dates: start: 20180715, end: 20180715
  68. VITAMIN B1 [Concomitant]
     Active Substance: THIAMINE HYDROCHLORIDE
     Indication: PRODUCT USED FOR UNKNOWN INDICATION
     Dosage: 100 MG, QD
     Route: 048
     Dates: start: 20180704
  69. PHOSPHATE [Concomitant]
     Active Substance: UNSPECIFIED INGREDIENT
     Dosage: 500 MG, QD
     Route: 048
     Dates: start: 20080608, end: 20180611
  70. FLUCLOXACILLIN [Concomitant]
     Active Substance: FLUCLOXACILLIN
     Dosage: 2000 MG, Q4H
     Route: 042
     Dates: start: 20180610, end: 20180611
  71. LOPERAMIDE [Concomitant]
     Active Substance: LOPERAMIDE
     Indication: PRODUCT USED FOR UNKNOWN INDICATION
     Dosage: 2 MG, QD
     Route: 048
     Dates: start: 20180611, end: 20180611
  72. ENDOXAN [Suspect]
     Active Substance: CYCLOPHOSPHAMIDE
     Indication: METASTATIC MALIGNANT MELANOMA
     Dosage: 6900 MG, UNK
     Route: 042
     Dates: start: 20180605, end: 20180605
  73. INTERLEUKIN-2 [Suspect]
     Active Substance: ALDESLEUKIN
     Indication: METASTATIC MALIGNANT MELANOMA
     Dosage: 82.8 OT, UNK (10 TO 6 UI)
     Route: 042
     Dates: start: 20180612, end: 20180612
  74. FUROSEMIDE. [Concomitant]
     Active Substance: FUROSEMIDE
     Dosage: 20 MG, QD
     Route: 042
     Dates: start: 20180618, end: 20180618
  75. FUROSEMIDE. [Concomitant]
     Active Substance: FUROSEMIDE
     Dosage: 40 MG/H, TID
     Route: 042
     Dates: start: 20180623, end: 20180623
  76. ACETAMINOPHEN. [Concomitant]
     Active Substance: ACETAMINOPHEN
     Dosage: 1000 MG, QD
     Route: 048
     Dates: start: 20180614, end: 20180614
  77. ACETAMINOPHEN. [Concomitant]
     Active Substance: ACETAMINOPHEN
     Dosage: 1000 MG, QD
     Route: 048
     Dates: start: 20180619, end: 20180620
  78. MORPHINE [Concomitant]
     Active Substance: MORPHINE
     Dosage: 5 MG, QD
     Route: 058
     Dates: start: 20180613, end: 20180613
  79. MORPHINE [Concomitant]
     Active Substance: MORPHINE
     Dosage: 9 MG, 6 TIMES A DAY
     Route: 058
     Dates: start: 20180710, end: 20180711
  80. LORAZEPAM. [Concomitant]
     Active Substance: LORAZEPAM
     Indication: PRODUCT USED FOR UNKNOWN INDICATION
     Dosage: 1 MG, QD
     Route: 048
     Dates: start: 20180610, end: 20180610
  81. PREGABALIN. [Concomitant]
     Active Substance: PREGABALIN
     Dosage: 100 MG, BID
     Route: 048
     Dates: start: 20180705
  82. VALACICLOVIR [Concomitant]
     Active Substance: VALACYCLOVIR HYDROCHLORIDE
     Dosage: 500 MG, QD
     Route: 048
     Dates: start: 20180701, end: 20180701
  83. VALACICLOVIR [Concomitant]
     Active Substance: VALACYCLOVIR HYDROCHLORIDE
     Dosage: 500 MG, BID
     Route: 048
     Dates: start: 20180706
  84. MACROGOL [Concomitant]
     Active Substance: POLYETHYLENE GLYCOLS
     Dosage: 1 U, BID
     Route: 048
     Dates: start: 20180702
  85. MACROGOL [Concomitant]
     Active Substance: POLYETHYLENE GLYCOLS
     Dosage: 1 U, QD
     Route: 048
     Dates: start: 20180706, end: 20180706
  86. ENOXAPARIN SODIUM. [Concomitant]
     Active Substance: ENOXAPARIN SODIUM
     Dosage: 40 MG, QD
     Route: 058
     Dates: start: 20180711
  87. FLUOXETINE [Concomitant]
     Active Substance: FLUOXETINE HYDROCHLORIDE
     Indication: PRODUCT USED FOR UNKNOWN INDICATION
     Dosage: 20 MG, QD
     Route: 048
     Dates: start: 20150227, end: 20180604
  88. PETHIDINE [Concomitant]
     Active Substance: MEPERIDINE
     Indication: PRODUCT USED FOR UNKNOWN INDICATION
     Dosage: 50 MG, QD
     Route: 042
     Dates: start: 20180612, end: 20180613
  89. PETHIDINE [Concomitant]
     Active Substance: MEPERIDINE
     Dosage: 25 MG, QD
     Route: 042
     Dates: start: 20180613, end: 20180613
  90. FOLIC ACID. [Concomitant]
     Active Substance: FOLIC ACID
     Dosage: 5 MG, QD
     Route: 048
     Dates: start: 20180714, end: 20180716
  91. DABRAFENIB [Suspect]
     Active Substance: DABRAFENIB
     Indication: MALIGNANT MELANOMA
     Dosage: 75 MG, BID
     Route: 048
     Dates: start: 20171012, end: 20180601
  92. FLUDARABINE [Suspect]
     Active Substance: FLUDARABINE PHOSPHATE
     Dosage: 59.5 MG, UNK
     Route: 042
     Dates: start: 20180609, end: 20180609
  93. FUROSEMIDE. [Concomitant]
     Active Substance: FUROSEMIDE
     Dosage: 40 MG, QD
     Route: 042
     Dates: start: 20180611, end: 20180612
  94. FUROSEMIDE. [Concomitant]
     Active Substance: FUROSEMIDE
     Dosage: 40 MG, QD
     Route: 042
     Dates: start: 20180618, end: 20180619
  95. ACETAMINOPHEN. [Concomitant]
     Active Substance: ACETAMINOPHEN
     Dosage: 1000 MG, QD
     Route: 048
     Dates: start: 20180622, end: 20180622
  96. MORPHINE [Concomitant]
     Active Substance: MORPHINE
     Dosage: 8 MG, QD
     Route: 048
     Dates: start: 20180620, end: 20180620
  97. MORPHINE [Concomitant]
     Active Substance: MORPHINE
     Dosage: 8 MG, QD
     Route: 048
     Dates: start: 20180624, end: 20180624
  98. MORPHINE [Concomitant]
     Active Substance: MORPHINE
     Dosage: 8 MG, QD
     Route: 048
     Dates: start: 20180625, end: 20180625
  99. MORPHINE [Concomitant]
     Active Substance: MORPHINE
     Dosage: 9 MG, 5QD
     Route: 058
     Dates: start: 20180705, end: 20180706
  100. MORPHINE [Concomitant]
     Active Substance: MORPHINE
     Dosage: 40 MG, QD
     Route: 048
     Dates: start: 20180713, end: 20180713
  101. POTASSIUM [Concomitant]
     Active Substance: POTASSIUM
     Dosage: 1 DF, TID
     Route: 048
     Dates: start: 20180612, end: 20180616
  102. POTASSIUM [Concomitant]
     Active Substance: POTASSIUM
     Dosage: 1 DF, TID
     Route: 048
     Dates: start: 20180620, end: 20180623
  103. LORAZEPAM. [Concomitant]
     Active Substance: LORAZEPAM
     Dosage: 1 MG, QD
     Route: 048
     Dates: start: 20180620, end: 20180620
  104. CEFEPIME [Concomitant]
     Active Substance: CEFEPIME HYDROCHLORIDE
     Dosage: 2 G, BID
     Route: 042
     Dates: start: 20180615, end: 20180617
  105. TORASEMIDE [Concomitant]
     Active Substance: TORSEMIDE
     Indication: PRODUCT USED FOR UNKNOWN INDICATION
     Dosage: 10 MG, QD
     Route: 048
     Dates: start: 20180623, end: 20180623
  106. PREGABALIN. [Concomitant]
     Active Substance: PREGABALIN
     Dosage: 75 MG, QD
     Route: 048
     Dates: start: 20180701, end: 20180701
  107. PREGABALIN. [Concomitant]
     Active Substance: PREGABALIN
     Dosage: 75 MG, BID
     Route: 048
     Dates: start: 20180702, end: 20180704
  108. PREGABALIN. [Concomitant]
     Active Substance: PREGABALIN
     Dosage: 100 MG, QD
     Route: 048
     Dates: start: 20180713, end: 20180713
  109. VALACICLOVIR [Concomitant]
     Active Substance: VALACYCLOVIR HYDROCHLORIDE
     Indication: PRODUCT USED FOR UNKNOWN INDICATION
     Dosage: 500 MG, BID
     Route: 048
     Dates: start: 20180610, end: 20180630
  110. ENOXAPARIN SODIUM. [Concomitant]
     Active Substance: ENOXAPARIN SODIUM
     Indication: PRODUCT USED FOR UNKNOWN INDICATION
     Dosage: 40 MG, QD
     Route: 058
     Dates: start: 20180701, end: 20180709
  111. ESOMEPRAZOLE. [Concomitant]
     Active Substance: ESOMEPRAZOLE MAGNESIUM
     Indication: PRODUCT USED FOR UNKNOWN INDICATION
     Dosage: 40 MG, BID
     Route: 042
     Dates: start: 20180604, end: 20180604
  112. POTASSIUM CHLORIDE. [Concomitant]
     Active Substance: POTASSIUM CHLORIDE
     Dosage: 20 MMOL, BID
     Route: 042
     Dates: start: 20180612, end: 20180612
  113. SALBUTAMOL [Concomitant]
     Active Substance: ALBUTEROL
     Indication: PRODUCT USED FOR UNKNOWN INDICATION
     Dosage: 5 MG, QD
     Route: 055
     Dates: start: 20180613, end: 20180613
  114. ENDOXAN [Suspect]
     Active Substance: CYCLOPHOSPHAMIDE
     Dosage: 6900 MG, UNK
     Route: 042
     Dates: start: 20180606, end: 20180606
  115. FLUDARABINE [Suspect]
     Active Substance: FLUDARABINE PHOSPHATE
     Dosage: 59.5 MG, UNK
     Route: 042
     Dates: start: 20180607, end: 20180607
  116. FLUDARABINE [Suspect]
     Active Substance: FLUDARABINE PHOSPHATE
     Dosage: 59.5 MG, UNK
     Route: 042
     Dates: start: 20180608, end: 20180608
  117. POTASSIUM PHOSPHATE [Concomitant]
     Active Substance: POTASSIUM PHOSPHATE
     Indication: PRODUCT USED FOR UNKNOWN INDICATION
     Dosage: 20 MMOL, QD
     Route: 042
     Dates: start: 20180604, end: 20180604
  118. FUROSEMIDE. [Concomitant]
     Active Substance: FUROSEMIDE
     Dosage: 40 MG/H, BID
     Route: 042
     Dates: start: 20180619, end: 20180620
  119. CALCIUM GLUCONATE. [Concomitant]
     Active Substance: CALCIUM GLUCONATE
     Dosage: 2.25 MMOL, TID
     Route: 042
     Dates: start: 20180606, end: 20180606
  120. CALCIUM GLUCONATE. [Concomitant]
     Active Substance: CALCIUM GLUCONATE
     Dosage: 2.25 MMOL, QD
     Route: 042
     Dates: start: 20180609, end: 20180609
  121. CALCIUM [Concomitant]
     Active Substance: CALCIUM
     Dosage: 1 U, QD
     Route: 048
     Dates: start: 20180706, end: 20180713
  122. ACETAMINOPHEN. [Concomitant]
     Active Substance: ACETAMINOPHEN
     Dosage: 500 MG, QD
     Route: 048
     Dates: start: 20180618, end: 20180619
  123. ACETAMINOPHEN. [Concomitant]
     Active Substance: ACETAMINOPHEN
     Dosage: 1000 MG, QD
     Route: 048
     Dates: start: 20180624, end: 20180624
  124. MORPHINE [Concomitant]
     Active Substance: MORPHINE
     Dosage: 8 MG, QD
     Route: 048
     Dates: start: 20180623, end: 20180623
  125. MORPHINE [Concomitant]
     Active Substance: MORPHINE
     Dosage: 9 MG, QID
     Route: 058
     Dates: start: 20180703, end: 20180704
  126. MORPHINE [Concomitant]
     Active Substance: MORPHINE
     Dosage: 9 MG, QID
     Route: 058
     Dates: start: 20180709, end: 20180709
  127. CEFEPIME [Concomitant]
     Active Substance: CEFEPIME HYDROCHLORIDE
     Indication: PRODUCT USED FOR UNKNOWN INDICATION
     Dosage: 2 G, QD
     Route: 042
     Dates: start: 20180612, end: 20180612
  128. CEFEPIME [Concomitant]
     Active Substance: CEFEPIME HYDROCHLORIDE
     Dosage: 2 G, TID
     Route: 042
     Dates: start: 19780613, end: 20180614
  129. DOMPERIDONE [Concomitant]
     Active Substance: DOMPERIDONE
     Indication: PRODUCT USED FOR UNKNOWN INDICATION
     Dosage: 10 MG, QD
     Route: 048
     Dates: start: 20180621, end: 20180621
  130. OXYCODONE [Concomitant]
     Active Substance: OXYCODONE
     Dosage: 7 MG, PRN
     Route: 048
     Dates: start: 20180629
  131. CLYSSIE [Concomitant]
     Indication: PRODUCT USED FOR UNKNOWN INDICATION
     Dosage: 1 U, QD
     Route: 054
     Dates: start: 20180702, end: 20180702
  132. PHOSPHATE [Concomitant]
     Active Substance: UNSPECIFIED INGREDIENT
     Indication: PRODUCT USED FOR UNKNOWN INDICATION
     Dosage: 3 MMOL, QD
     Route: 048
     Dates: start: 20180604, end: 20180604
  133. FLUCLOXACILLIN [Concomitant]
     Active Substance: FLUCLOXACILLIN
     Indication: PRODUCT USED FOR UNKNOWN INDICATION
     Dosage: 2000 MG, TID
     Route: 042
     Dates: start: 20180609, end: 20180609
  134. FLUCLOXACILLIN [Concomitant]
     Active Substance: FLUCLOXACILLIN
     Dosage: 2000 MG, TID
     Route: 042
     Dates: start: 20180612, end: 20180613
  135. POTASSIUM CHLORIDE. [Concomitant]
     Active Substance: POTASSIUM CHLORIDE
     Indication: PRODUCT USED FOR UNKNOWN INDICATION
     Dosage: 10 MMOL, BID
     Route: 042
     Dates: start: 20180610, end: 20180610
  136. PEGFILGRASTIM [Concomitant]
     Active Substance: PEGFILGRASTIM
     Indication: PRODUCT USED FOR UNKNOWN INDICATION
     Dosage: 6 UNK, UNK
     Route: 058
     Dates: start: 20180612, end: 20180612
  137. CERNEVIT [Concomitant]
     Active Substance: VITAMINS
     Indication: PRODUCT USED FOR UNKNOWN INDICATION
     Dosage: 1 DF, QD
     Route: 050
     Dates: start: 20180615, end: 20180622
  138. FOLIC ACID. [Concomitant]
     Active Substance: FOLIC ACID
     Indication: PRODUCT USED FOR UNKNOWN INDICATION
     Dosage: 5 MG, QD
     Route: 048
     Dates: start: 20180703, end: 20180712

REACTIONS (7)
  - Guillain-Barre syndrome [Recovered/Resolved with Sequelae]
  - CSF protein increased [Unknown]
  - Back pain [Recovering/Resolving]
  - Paraesthesia [Unknown]
  - Myalgia [Not Recovered/Not Resolved]
  - Abdominal pain upper [Unknown]
  - Albumin CSF increased [Unknown]

NARRATIVE: CASE EVENT DATE: 20180618
